FAERS Safety Report 4731293-9 (Version None)
Quarter: 2005Q3

REPORT INFORMATION
  Report Type: 
  Country: None (occurrence: None)
  Receive Date: 20050728
  Receipt Date: 20050728
  Transmission Date: 20060218
  Serious: Yes (Hospitalization)
  Sender: FDA-Public Use
  Company Number: None

PATIENT
  Age: 49 Year
  Sex: Male
  Weight: 75.2971 kg

DRUGS (10)
  1. VELCADE [Suspect]
     Dosage: 3.10 INTRAVENOUS
     Route: 042
     Dates: start: 20050323, end: 20050525
  2. CAPECITABINE [Suspect]
  3. OXALIPLATIN 252.20 [Suspect]
     Dosage: INTRAVENOUS
     Route: 042
  4. MS CONTIN [Concomitant]
  5. MEGACE [Concomitant]
  6. ZANTAC [Concomitant]
  7. DECADRON [Concomitant]
  8. LOVENOX [Concomitant]
  9. SENOKOT [Concomitant]
  10. MS CONTIN [Concomitant]

REACTIONS (6)
  - DYSPNOEA [None]
  - HYPOXIA [None]
  - LETHARGY [None]
  - LOSS OF CONSCIOUSNESS [None]
  - METASTASES TO LUNG [None]
  - OXYGEN SATURATION DECREASED [None]
